FAERS Safety Report 4835804-4 (Version None)
Quarter: 2005Q4

REPORT INFORMATION
  Report Type: 
  Country: None (occurrence: None)
  Receive Date: 20051118
  Receipt Date: 20051108
  Transmission Date: 20060501
  Serious: Yes (Hospitalization, Other)
  Sender: FDA-Public Use
  Company Number: 2005154043

PATIENT
  Age: 58 Year
  Sex: Male
  Weight: 108.8633 kg

DRUGS (6)
  1. ZOLOFT [Suspect]
     Indication: DEPRESSION
     Dosage: 100 MG (100 MG, 1 IN 1 D), ORAL
     Route: 048
  2. NAPROSYN [Concomitant]
  3. TRAZODONE HCL [Concomitant]
  4. TYLENOL PM (DIPHENHYDRAMINE, PARACETAMOL) [Concomitant]
  5. ANTACIDS (ANTACIDS) [Concomitant]
  6. CHONDROITIN/GLUCOSAMINE (CHONDROITIN, GLUCOSAMINE) [Concomitant]

REACTIONS (9)
  - ANGER [None]
  - ANXIETY [None]
  - BLADDER CANCER [None]
  - HAEMORRHOIDS [None]
  - HYPOTENSION [None]
  - PYREXIA [None]
  - SEPSIS [None]
  - VOMITING [None]
  - WHITE BLOOD CELL COUNT INCREASED [None]
